FAERS Safety Report 8588947 (Version 2)
Quarter: 2013Q2

REPORT INFORMATION
  Report Type: Spontaneous
  Country: JP (occurrence: JP)
  Receive Date: 20120531
  Receipt Date: 20130626
  Transmission Date: 20140414
  Serious: Yes (Other)
  Sender: FDA-Public Use
  Company Number: JP-SHIRE-ALL1-2012-02614

PATIENT
  Sex: Male

DRUGS (1)
  1. FOSRENOL [Suspect]
     Indication: HYPERPHOSPHATAEMIA
     Dosage: UNK, UNKNOWN
     Route: 048

REACTIONS (2)
  - Hepatic encephalopathy [Unknown]
  - Condition aggravated [Unknown]
